FAERS Safety Report 18188448 (Version 6)
Quarter: 2020Q4

REPORT INFORMATION
  Report Type: Report from Study
  Country: HK (occurrence: HK)
  Receive Date: 20200824
  Receipt Date: 20201119
  Transmission Date: 20210113
  Serious: Yes (Other)
  Sender: FDA-Public Use
  Company Number: HK-BAYER-2020-174610

PATIENT
  Age: 46 Year

DRUGS (1)
  1. LAROTRECTINIB [Suspect]
     Active Substance: LAROTRECTINIB
     Indication: NEOPLASM MALIGNANT
     Dosage: 100 MG, BID
     Route: 048
     Dates: start: 201911, end: 20201113

REACTIONS (3)
  - Carcinoembryonic antigen increased [None]
  - Hepatic failure [Not Recovered/Not Resolved]
  - Neoplasm malignant [None]

NARRATIVE: CASE EVENT DATE: 2020
